FAERS Safety Report 6611220-X (Version None)
Quarter: 2010Q1

REPORT INFORMATION
  Report Type: 
  Country: None (occurrence: None)
  Receive Date: 20100303
  Receipt Date: 20100216
  Transmission Date: 20100710
  Serious: Yes (Hospitalization, Other)
  Sender: FDA-Public Use
  Company Number: US-ELI_LILLY_AND_COMPANY-US201002005459

PATIENT
  Sex: Female

DRUGS (3)
  1. FORTEO [Suspect]
     Indication: OSTEOPOROSIS
     Dosage: 20 UG, DAILY (1/D)
     Route: 065
     Dates: start: 20091101
  2. FORTEO [Suspect]
     Dosage: 20 UG, QOD
     Route: 065
     Dates: end: 20100101
  3. FORTEO [Suspect]
     Dosage: 20 UG, QOD
     Route: 065
     Dates: start: 20100101

REACTIONS (4)
  - DEVICE RELATED INFECTION [None]
  - KNEE ARTHROPLASTY [None]
  - MOBILITY DECREASED [None]
  - RHEUMATOID ARTHRITIS [None]
